FAERS Safety Report 10373827 (Version 1)
Quarter: 2014Q1

REPORT INFORMATION
  Report Type: Spontaneous
  Country: US (occurrence: None)
  Receive Date: 20140306
  Receipt Date: 20140306
  Transmission Date: 20141002
  Serious: Yes (Other)
  Sender: FDA-Public Use
  Company Number: 163-21880-13084144

PATIENT
  Age: 63 Year
  Sex: Male

DRUGS (7)
  1. REVLIMID [Suspect]
     Indication: PLASMA CELL MYELOMA
     Route: 048
     Dates: start: 20090917
  2. DEXAMETHASONE [Concomitant]
  3. COUMADIN (WARFARIN SODIIUM) [Concomitant]
  4. METFORMIN HCL (METFORMIN HYDROCHLORIDE) [Concomitant]
  5. LISINOPRIL [Concomitant]
  6. NEXIUM (ESOMEPRAZOLE) [Concomitant]
  7. FLOMAX (TAMSULOSIN HYDROCHLORIDE) [Concomitant]

REACTIONS (1)
  - Thrombosis [None]
